FAERS Safety Report 16558570 (Version 1)
Quarter: 2019Q3

REPORT INFORMATION
  Report Type: Spontaneous
  Country: ES (occurrence: ES)
  Receive Date: 20190711
  Receipt Date: 20190711
  Transmission Date: 20191004
  Serious: Yes (Death)
  Sender: FDA-Public Use
  Company Number: ES-JNJFOC-20190636569

PATIENT
  Age: 56 Year
  Sex: Male
  Weight: 80 kg

DRUGS (10)
  1. QUETIAPINA [Concomitant]
     Active Substance: QUETIAPINE
     Dosage: QUETIAPINA 100 MG 60 COMPRIMIDOS
     Route: 048
  2. PALIPERIDONE PALMITATE [Suspect]
     Active Substance: PALIPERIDONE PALMITATE
     Route: 030
     Dates: start: 20171128, end: 20171128
  3. PALIPERIDONE PALMITATE [Suspect]
     Active Substance: PALIPERIDONE PALMITATE
     Route: 030
     Dates: start: 20171228
  4. METFORMIN [Concomitant]
     Active Substance: METFORMIN HYDROCHLORIDE
     Dosage: METFORMINA 850 MG 50 COMPRIMIDOS
     Route: 048
  5. EPCLUSA [Concomitant]
     Active Substance: SOFOSBUVIR\VELPATASVIR
     Indication: CHRONIC HEPATITIS
     Route: 048
     Dates: start: 20180216, end: 201805
  6. NOIAFREN [Concomitant]
     Active Substance: CLOBAZAM
     Dosage: NOIAFREN 20 MG COMPRIMIDOS , 20 COMPRIMIDOS
     Route: 048
  7. PARACETAMOL [Concomitant]
     Active Substance: ACETAMINOPHEN
     Route: 048
     Dates: start: 20190228
  8. PALIPERIDONE PALMITATE [Suspect]
     Active Substance: PALIPERIDONE PALMITATE
     Indication: DELUSION
     Route: 030
     Dates: start: 20171121, end: 20171121
  9. GEMFIBROZILO [Concomitant]
     Active Substance: GEMFIBROZIL
     Dosage: GEMFIBROZILO 600 MG 60 COMPRIMIDOS
     Route: 048
  10. OMEPRAZOLE. [Concomitant]
     Active Substance: OMEPRAZOLE
     Dosage: OMEPRAZOL 20 MG 28 C?PSULAS
     Route: 048

REACTIONS (3)
  - Product use in unapproved indication [Unknown]
  - Sudden death [Fatal]
  - Off label use [Unknown]
